FAERS Safety Report 10913594 (Version 2)
Quarter: 2016Q1

REPORT INFORMATION
  Report Type: Spontaneous
  Country: US (occurrence: US)
  Receive Date: 20150313
  Receipt Date: 20160114
  Transmission Date: 20160525
  Serious: No
  Sender: FDA-Public Use
  Company Number: US-BAYER-2015-027512

PATIENT
  Sex: Female

DRUGS (3)
  1. FINACEA [Suspect]
     Active Substance: AZELAIC ACID
     Indication: ROSACEA
     Dosage: ONCE A DAY, AT NIGHT
     Route: 061
  2. FINACEA [Suspect]
     Active Substance: AZELAIC ACID
     Indication: ROSACEA
     Dosage: ONCE A DAY, AT NIGHT
     Route: 061
  3. BRIMONIDINE [Concomitant]
     Active Substance: BRIMONIDINE TARTRATE

REACTIONS (8)
  - Emotional disorder [None]
  - Flushing [None]
  - Drug ineffective [None]
  - Dry skin [None]
  - Rash macular [None]
  - Depression [None]
  - Product physical issue [None]
  - Anxiety [None]
